FAERS Safety Report 4283689-X (Version None)
Quarter: 2004Q1

REPORT INFORMATION
  Report Type: 
  Country: None (occurrence: None)
  Receive Date: 20040129
  Receipt Date: 20040129
  Transmission Date: 20041129
  Serious: Yes (Hospitalization)
  Sender: FDA-Public Use
  Company Number: None

PATIENT
  Age: 48 Year
  Sex: Male
  Weight: 108.9086 kg

DRUGS (5)
  1. LISINOPRIL [Suspect]
     Indication: HYPERTENSION
  2. DOXAZOSIN MESYLATE [Concomitant]
  3. BACLOFEN [Concomitant]
  4. DIAZEPAM [Concomitant]
  5. PERCOCET [Concomitant]

REACTIONS (4)
  - DYSPHAGIA [None]
  - PRURITUS [None]
  - RASH [None]
  - SWELLING FACE [None]
